FAERS Safety Report 6708452-9 (Version None)
Quarter: 2010Q2

REPORT INFORMATION
  Report Type: 
  Country: None (occurrence: None)
  Receive Date: 20100503
  Receipt Date: 20090618
  Transmission Date: 20101027
  Serious: No
  Sender: FDA-Public Use
  Company Number: US-ASTRAZENECA-2009UW15873

PATIENT
  Age: 62 Year
  Sex: Female
  Weight: 65.3 kg

DRUGS (2)
  1. NEXIUM [Suspect]
     Route: 048
     Dates: start: 20060101, end: 20090101
  2. PRILOSEC [Suspect]
     Route: 048

REACTIONS (2)
  - CONSTIPATION [None]
  - GASTROINTESTINAL ULCER [None]
